FAERS Safety Report 7731556-9 (Version None)
Quarter: 2011Q3

REPORT INFORMATION
  Report Type: 
  Country: None (occurrence: None)
  Receive Date: 20110906
  Receipt Date: 20110808
  Transmission Date: 20111222
  Serious: No
  Sender: FDA-Public Use
  Company Number: US-BAYER-2011-072052

PATIENT
  Age: 26 Year
  Sex: Female
  Weight: 79.365 kg

DRUGS (2)
  1. ALEVE (CAPLET) [Suspect]
     Dosage: 2 DF, ONCE, BOTTLE COUNT 50S
     Route: 048
     Dates: start: 20110808
  2. ALEVE (CAPLET) [Suspect]
     Indication: PAIN IN EXTREMITY
     Dosage: 3 DF, ONCE, BOTTLE COUNT 50S
     Route: 048
     Dates: start: 20110807

REACTIONS (4)
  - OCULAR HYPERAEMIA [None]
  - SWELLING FACE [None]
  - EYE SWELLING [None]
  - EYE DISCHARGE [None]
